FAERS Safety Report 8374539-0 (Version None)
Quarter: 2012Q2

REPORT INFORMATION
  Report Type: 
  Country: None (occurrence: None)
  Receive Date: 20120521
  Receipt Date: 20120517
  Transmission Date: 20120825
  Serious: Yes (Hospitalization, Other)
  Sender: FDA-Public Use
  Company Number: BR-PFIZER INC-2012111754

PATIENT
  Age: 75 Year
  Sex: Male

DRUGS (3)
  1. LOSARTAN POTASSIUM [Concomitant]
     Dosage: UNK
  2. LIPITOR [Suspect]
     Indication: ANTICOAGULANT THERAPY
     Dosage: 20 MG, UNK
     Route: 048
     Dates: start: 20070101
  3. APRAZ [Concomitant]
     Dosage: UNK

REACTIONS (5)
  - AORTIC ANEURYSM [None]
  - ANEURYSM [None]
  - NECROSIS [None]
  - THROMBOSIS [None]
  - LEG AMPUTATION [None]
